FAERS Safety Report 10912502 (Version 1)
Quarter: 2015Q1

REPORT INFORMATION
  Report Type: Spontaneous
  Country: US (occurrence: None)
  Receive Date: 20150310
  Receipt Date: 20150310
  Transmission Date: 20150721
  Serious: No
  Sender: FDA-Public Use
  Company Number: None

PATIENT
  Age: 25 Year
  Sex: Female

DRUGS (1)
  1. TECFIDERA [Suspect]
     Active Substance: DIMETHYL FUMARATE
     Indication: MULTIPLE SCLEROSIS
     Dosage: CAP
     Dates: start: 20141007, end: 20150306

REACTIONS (2)
  - Maternal exposure during pregnancy [None]
  - Pregnancy [None]

NARRATIVE: CASE EVENT DATE: 20150306
